FAERS Safety Report 17762783 (Version 1)
Quarter: 2020Q2

REPORT INFORMATION
  Report Type: Other
  Country: JP (occurrence: JP)
  Receive Date: 20200508
  Receipt Date: 20200508
  Transmission Date: 20200714
  Serious: Yes (Life-Threatening, Hospitalization, Other)
  Sender: FDA-Public Use
  Company Number: JP-OSMOTICA_PHARMACEUTICAL_US_LLC-POI0573202000331

PATIENT
  Age: 41 Year
  Sex: Female

DRUGS (8)
  1. DYDROGESTERONE [Suspect]
     Active Substance: DYDROGESTERONE
     Indication: LUTEAL PHASE DEFICIENCY
     Route: 048
     Dates: end: 2020
  2. DIVIGEL [Suspect]
     Active Substance: ESTRADIOL
     Dosage: 1.5 TO 3.0 MG PER DAY DURING FET 5
     Route: 048
     Dates: start: 2020, end: 2020
  3. TACROLIMUS MONOHYDRATE [Suspect]
     Active Substance: TACROLIMUS
     Indication: SYSTEMIC LUPUS ERYTHEMATOSUS
     Dates: end: 2020
  4. PROGESTERONE. [Suspect]
     Active Substance: PROGESTERONE
     Indication: LUTEAL PHASE DEFICIENCY
     Route: 067
     Dates: end: 2020
  5. HYDROXYCHLOROQUINE [Suspect]
     Active Substance: HYDROXYCHLOROQUINE
     Indication: SYSTEMIC LUPUS ERYTHEMATOSUS
     Dates: end: 2020
  6. DIVIGEL [Suspect]
     Active Substance: ESTRADIOL
     Dosage: 1.44 MG EVERY 2 DAYS DURING FET 5
     Route: 062
     Dates: start: 2020, end: 2020
  7. DIVIGEL [Suspect]
     Active Substance: ESTRADIOL
     Indication: HORMONE THERAPY
     Dosage: 1.44 TO 2.88 MG EVERY 2 DAYS EACH BETWEEN FET 1 AND FET 4
     Route: 062
     Dates: start: 2020, end: 2020
  8. PREDNISOLONE. [Suspect]
     Active Substance: PREDNISOLONE
     Indication: SYSTEMIC LUPUS ERYTHEMATOSUS
     Dates: end: 2020

REACTIONS (9)
  - Pre-eclampsia [Recovered/Resolved]
  - Uterine obstruction [Recovered/Resolved]
  - Haemorrhage [Recovered/Resolved]
  - Exposure during pregnancy [Recovered/Resolved]
  - Hypogonadism [Recovered/Resolved]
  - Placenta accreta [Recovered/Resolved]
  - Pelvic infection [Recovered/Resolved]
  - Proteinuria [Recovered/Resolved]
  - Hormone level abnormal [Recovered/Resolved]

NARRATIVE: CASE EVENT DATE: 2020
